FAERS Safety Report 5780228-9 (Version None)
Quarter: 2008Q2

REPORT INFORMATION
  Report Type: 
  Country: None (occurrence: None)
  Receive Date: 20080620
  Receipt Date: 20080611
  Transmission Date: 20081010
  Serious: Yes (Other)
  Sender: FDA-Public Use
  Company Number: PHHY2008CA10947

PATIENT
  Sex: Male

DRUGS (3)
  1. DIOVAN [Suspect]
     Indication: HYPERTENSION
     Dosage: 80 MG/DAY
     Route: 048
     Dates: start: 20080609, end: 20080609
  2. ASPIRIN [Concomitant]
     Dosage: 80 MG, QD
  3. OCTROL [Concomitant]
     Dosage: 2 MG, BID

REACTIONS (4)
  - DYSPNOEA [None]
  - HEARING IMPAIRED [None]
  - THINKING ABNORMAL [None]
  - VISUAL ACUITY REDUCED [None]
